FAERS Safety Report 5708068-7 (Version None)
Quarter: 2008Q2

REPORT INFORMATION
  Report Type: 
  Country: None (occurrence: None)
  Receive Date: 20080417
  Receipt Date: 20080407
  Transmission Date: 20081010
  Serious: Yes (Hospitalization)
  Sender: FDA-Public Use
  Company Number: ES-ELI_LILLY_AND_COMPANY-ES200804002219

PATIENT
  Age: 69 Year
  Sex: Male

DRUGS (3)
  1. FORTEO [Suspect]
     Indication: OSTEOPOROSIS
     Dosage: 20 UG, UNKNOWN
     Route: 058
     Dates: start: 20080301
  2. ANALGESICS [Concomitant]
     Indication: PAIN
     Dosage: UNK, UNKNOWN
  3. OXYGEN [Concomitant]
     Indication: RESPIRATORY FAILURE
     Dosage: UNK, AS NEEDED

REACTIONS (5)
  - DIZZINESS [None]
  - LUNG DISORDER [None]
  - PNEUMONIA [None]
  - PYREXIA [None]
  - VOMITING [None]
